FAERS Safety Report 24986726 (Version 1)
Quarter: 2025Q1

REPORT INFORMATION
  Report Type: Spontaneous
  Country: ES (occurrence: ES)
  Receive Date: 20250219
  Receipt Date: 20250219
  Transmission Date: 20250408
  Serious: Yes (Other)
  Sender: MYLAN
  Company Number: None

PATIENT
  Age: 90 Year
  Sex: Female

DRUGS (2)
  1. TRAMADOL [Interacting]
     Active Substance: TRAMADOL
     Indication: Musculoskeletal chest pain
     Dosage: 25 MILLIGRAM, Q8H
     Route: 048
     Dates: start: 20241230, end: 20250104
  2. FENTANYL [Interacting]
     Active Substance: FENTANYL
     Indication: Pain
     Dosage: 12.5 MICROGRAM, Q3D (72 HOURS)
     Route: 062
     Dates: start: 20221014

REACTIONS (4)
  - Nausea [Recovering/Resolving]
  - Constipation [Recovering/Resolving]
  - Hallucination, auditory [Recovered/Resolved]
  - Drug interaction [Unknown]

NARRATIVE: CASE EVENT DATE: 20250102
